FAERS Safety Report 6131980-4 (Version None)
Quarter: 2009Q1

REPORT INFORMATION
  Report Type: 
  Country: None (occurrence: None)
  Receive Date: 20090323
  Receipt Date: 20090305
  Transmission Date: 20090719
  Serious: Yes (Death)
  Sender: FDA-Public Use
  Company Number: DSA_33350_2009

PATIENT
  Age: 68 Year
  Sex: Male

DRUGS (7)
  1. ENALAPRIL MALEATE [Suspect]
     Indication: CARDIAC FAILURE CONGESTIVE
     Dosage: (DF ORAL)
     Route: 048
     Dates: start: 20000112, end: 20000117
  2. DIGOXIN [Concomitant]
  3. IMPUGAN [Concomitant]
  4. APRESOLINE [Concomitant]
  5. ISMO [Concomitant]
  6. SELOKENZOC [Concomitant]
  7. WARFARIN SODIUM [Concomitant]

REACTIONS (7)
  - CEREBRAL DISORDER [None]
  - CEREBRAL HAEMORRHAGE [None]
  - CONGESTIVE CARDIOMYOPATHY [None]
  - DILATATION VENTRICULAR [None]
  - DISEASE PROGRESSION [None]
  - PULMONARY EMBOLISM [None]
  - SUDDEN DEATH [None]
